FAERS Safety Report 7326040-0 (Version None)
Quarter: 2011Q1

REPORT INFORMATION
  Report Type: 
  Country: None (occurrence: None)
  Receive Date: 20110218
  Receipt Date: 20110214
  Transmission Date: 20110831
  Serious: Yes (Hospitalization, Other)
  Sender: FDA-Public Use
  Company Number: JPI-P-013913

PATIENT
  Age: 52 Year
  Sex: Male

DRUGS (2)
  1. XYREM [Suspect]
     Indication: HYPERSOMNIA
     Dosage: 4.5 GM (2.25 GM,2 IN 1 D),ORAL ; (4.5 GM FIRST DOSE/2.5 GM SECOND DOSE), ORAL
     Route: 048
     Dates: start: 20070110, end: 20091129
  2. XYREM [Suspect]
     Indication: HYPERSOMNIA
     Dosage: 4.5 GM (2.25 GM,2 IN 1 D),ORAL ; (4.5 GM FIRST DOSE/2.5 GM SECOND DOSE), ORAL
     Route: 048
     Dates: start: 20091130

REACTIONS (6)
  - INITIAL INSOMNIA [None]
  - FALL [None]
  - SOMNOLENCE [None]
  - LOWER LIMB FRACTURE [None]
  - MEMORY IMPAIRMENT [None]
  - GAIT DISTURBANCE [None]
